FAERS Safety Report 23991940 (Version 1)
Quarter: 2024Q2

REPORT INFORMATION
  Report Type: Spontaneous
  Country: US (occurrence: US)
  Receive Date: 20240620
  Receipt Date: 20240620
  Transmission Date: 20240716
  Serious: Yes (Other)
  Sender: FDA-Public Use
  Company Number: US-PFIZER INC-PV202400078674

PATIENT
  Age: 78 Year
  Sex: Male

DRUGS (1)
  1. VYNDAMAX [Suspect]
     Active Substance: TAFAMIDIS
     Dosage: 61 MG, 1X/DAY
     Route: 048

REACTIONS (7)
  - Cardiac failure [Unknown]
  - Ischaemic cardiomyopathy [Unknown]
  - Essential hypertension [Unknown]
  - Aortic dilatation [Unknown]
  - Device related infection [Unknown]
  - Arthritis infective [Unknown]
  - Arthralgia [Unknown]

NARRATIVE: CASE EVENT DATE: 20200312
